FAERS Safety Report 6580400-4 (Version None)
Quarter: 2010Q1

REPORT INFORMATION
  Report Type: 
  Country: None (occurrence: None)
  Receive Date: 20100212
  Receipt Date: 20100202
  Transmission Date: 20100710
  Serious: Yes (Life-Threatening, Other)
  Sender: FDA-Public Use
  Company Number: PHHY2010IE05144

PATIENT
  Age: 78 Year
  Sex: Female

DRUGS (1)
  1. RASILEZ [Suspect]
     Indication: BLOOD PRESSURE INCREASED
     Dosage: 150 MG, UNK
     Route: 048
     Dates: start: 20091102

REACTIONS (4)
  - AGRANULOCYTOSIS [None]
  - EOSINOPHIL COUNT DECREASED [None]
  - LYMPHOCYTE COUNT DECREASED [None]
  - WHITE BLOOD CELL COUNT DECREASED [None]
